FAERS Safety Report 15221281 (Version 1)
Quarter: 2018Q3

REPORT INFORMATION
  Report Type: Spontaneous
  Country: US (occurrence: US)
  Receive Date: 20180731
  Receipt Date: 20180731
  Transmission Date: 20181010
  Serious: Yes (Hospitalization)
  Sender: FDA-Public Use
  Company Number: US-ALSI-201800468

PATIENT
  Age: 19 Year
  Sex: Male

DRUGS (1)
  1. NITROGEN. [Suspect]
     Active Substance: NITROGEN
     Indication: SUBSTANCE USE
     Route: 055

REACTIONS (2)
  - Substance use [Recovered/Resolved]
  - Pneumoperitoneum [Recovered/Resolved]
